FAERS Safety Report 16633073 (Version 1)
Quarter: 2019Q3

REPORT INFORMATION
  Report Type: Spontaneous
  Country: CN (occurrence: CN)
  Receive Date: 20190725
  Receipt Date: 20190725
  Transmission Date: 20191004
  Serious: Yes (Other)
  Sender: FDA-Public Use
  Company Number: CN-PFIZER INC-2019313894

PATIENT
  Sex: Male

DRUGS (1)
  1. FLUCONAZOLE. [Suspect]
     Active Substance: FLUCONAZOLE
     Indication: ANTIFUNGAL TREATMENT
     Dosage: 200 MG, 1X/DAY
     Route: 041
     Dates: start: 20190617, end: 20190617

REACTIONS (7)
  - Pruritus generalised [Recovering/Resolving]
  - Drug hypersensitivity [Recovering/Resolving]
  - Tachypnoea [Recovering/Resolving]
  - Orthopnoea [Recovering/Resolving]
  - Flushing [Recovering/Resolving]
  - Chest discomfort [Recovering/Resolving]
  - Rales [Recovering/Resolving]

NARRATIVE: CASE EVENT DATE: 20190617
